FAERS Safety Report 9287692 (Version 1)
Quarter: 2013Q2

REPORT INFORMATION
  Report Type: Report from Study
  Country: US (occurrence: US)
  Receive Date: 20130514
  Receipt Date: 20130514
  Transmission Date: 20140414
  Serious: Yes (Other)
  Sender: FDA-Public Use
  Company Number: US-JNJFOC-20130503110

PATIENT
  Age: 31 Year
  Sex: 0

DRUGS (4)
  1. REMICADE [Suspect]
     Indication: ANKYLOSING SPONDYLITIS
     Route: 042
  2. LEFLUNOMIDE [Concomitant]
     Route: 065
  3. RELAFEN [Concomitant]
     Route: 065
  4. PREDNISONE [Concomitant]
     Route: 065

REACTIONS (1)
  - Myositis [Unknown]
